FAERS Safety Report 7898112-3 (Version None)
Quarter: 2011Q4

REPORT INFORMATION
  Report Type: 
  Country: None (occurrence: None)
  Receive Date: 20111028
  Receipt Date: 20110215
  Transmission Date: 20120403
  Serious: Yes (Other)
  Sender: FDA-Public Use
  Company Number: PHHY2011US13570

PATIENT
  Age: 55 Year
  Sex: Male

DRUGS (1)
  1. LESCOL XL [Suspect]
     Dosage: 80 MG, QD, ORAL
     Route: 048

REACTIONS (3)
  - INFLUENZA LIKE ILLNESS [None]
  - DRUG INEFFECTIVE [None]
  - DEPRESSION [None]
